FAERS Safety Report 5255309-9 (Version None)
Quarter: 2007Q1

REPORT INFORMATION
  Report Type: 
  Country: None (occurrence: None)
  Receive Date: 20070305
  Receipt Date: 20070226
  Transmission Date: 20070707
  Serious: Yes (Other)
  Sender: FDA-Public Use
  Company Number: CH-GLAXOSMITHKLINE-B0452419A

PATIENT
  Sex: Male
  Weight: 97 kg

DRUGS (6)
  1. AVANDAMET [Suspect]
     Dosage: 1TAB TWICE PER DAY
     Route: 048
     Dates: start: 20060221, end: 20061228
  2. HUMALOG [Concomitant]
     Route: 065
     Dates: start: 19970101
  3. IRBESARTAN [Concomitant]
     Dosage: 150MG PER DAY
     Route: 065
     Dates: start: 20040101
  4. ATORVASTATIN CALCIUM [Concomitant]
     Dosage: 20MG PER DAY
     Route: 065
     Dates: start: 20000101
  5. METFORMIN HCL [Concomitant]
     Dosage: 1000MG TWICE PER DAY
     Route: 065
     Dates: end: 20060221
  6. LEVEMIR [Concomitant]
     Dosage: 20IU PER DAY

REACTIONS (2)
  - DIABETES MELLITUS [None]
  - WEIGHT INCREASED [None]
